FAERS Safety Report 22243016 (Version 1)
Quarter: 2023Q2

REPORT INFORMATION
  Report Type: Spontaneous
  Country: US (occurrence: None)
  Receive Date: 20230421
  Receipt Date: 20230421
  Transmission Date: 20230722
  Serious: Yes (Other)
  Sender: FDA-Public Use
  Company Number: None

PATIENT
  Age: 81 Year
  Sex: Female
  Weight: 37.35 kg

DRUGS (1)
  1. PROLIA [Suspect]
     Active Substance: DENOSUMAB
     Indication: Osteoporosis
     Route: 058
     Dates: start: 20220826, end: 20230421

REACTIONS (11)
  - Back pain [None]
  - Rhinorrhoea [None]
  - Pain in extremity [None]
  - Pain in extremity [None]
  - Myalgia [None]
  - Dry skin [None]
  - Pruritus [None]
  - Hypoaesthesia [None]
  - Headache [None]
  - Blood pressure increased [None]
  - Weight decreased [None]
